FAERS Safety Report 6469602-5 (Version None)
Quarter: 2009Q4

REPORT INFORMATION
  Report Type: 
  Country: None (occurrence: None)
  Receive Date: 20091203
  Receipt Date: 20091125
  Transmission Date: 20100525
  Serious: Yes (Hospitalization)
  Sender: FDA-Public Use
  Company Number: FR-GENENTECH-295059

PATIENT
  Sex: Female

DRUGS (3)
  1. MABTHERA [Suspect]
     Indication: IDIOPATHIC THROMBOCYTOPENIC PURPURA
     Dosage: 375 MG/M2, UNK
     Route: 042
     Dates: start: 20090608, end: 20090629
  2. DAPSONE [Suspect]
     Indication: IDIOPATHIC THROMBOCYTOPENIC PURPURA
     Dosage: UNK
     Route: 048
     Dates: start: 20090929, end: 20091102
  3. CORAMINE [Suspect]
     Indication: MALAISE
     Dosage: 125 MG, QOD
     Route: 048
     Dates: start: 20090726, end: 20090809

REACTIONS (1)
  - AGRANULOCYTOSIS [None]
